FAERS Safety Report 19979645 (Version 4)
Quarter: 2022Q4

REPORT INFORMATION
  Report Type: Report from Study
  Country: UY (occurrence: UY)
  Receive Date: 20211020
  Receipt Date: 20221102
  Transmission Date: 20230113
  Serious: Yes (Other)
  Sender: FDA-Public Use
  Company Number: UY-ABBVIE-21K-168-4125615-00

PATIENT
  Age: 46 Year
  Sex: Male

DRUGS (1)
  1. RINVOQ [Suspect]
     Active Substance: UPADACITINIB
     Indication: Rheumatoid arthritis
     Dosage: FORM STRENGTH: 15 MG
     Route: 048
     Dates: start: 20200903

REACTIONS (7)
  - Medical device implantation [Unknown]
  - Foot operation [Recovering/Resolving]
  - Ligament sprain [Unknown]
  - Foot deformity [Not Recovered/Not Resolved]
  - Tendon disorder [Unknown]
  - Back pain [Unknown]
  - Muscle spasms [Not Recovered/Not Resolved]

NARRATIVE: CASE EVENT DATE: 20220101
